FAERS Safety Report 8340077-4 (Version None)
Quarter: 2012Q2

REPORT INFORMATION
  Report Type: 
  Country: None (occurrence: None)
  Receive Date: 20120507
  Receipt Date: 20090501
  Transmission Date: 20120825
  Serious: No
  Sender: FDA-Public Use
  Company Number: US-TEVA-2009004646

PATIENT
  Sex: Male
  Weight: 54.48 kg

DRUGS (7)
  1. SIMVASTATIN [Concomitant]
  2. FUROSEMIDE [Concomitant]
  3. ALLOPURINOL [Concomitant]
     Dates: start: 20090426
  4. MULTI-VITAMIN [Concomitant]
  5. GLYBURIDE [Concomitant]
     Dates: start: 20070101
  6. TREANDA [Suspect]
     Indication: CHRONIC LYMPHOCYTIC LEUKAEMIA
     Dosage: RECEIVED 80% OF THE NORMAL DOSE (AMOUNT NOT SPECIFIED)
     Route: 042
     Dates: start: 20090430
  7. LISINOPRIL [Concomitant]

REACTIONS (1)
  - BLOOD GLUCOSE INCREASED [None]
